FAERS Safety Report 6888043-X (Version None)
Quarter: 2010Q3

REPORT INFORMATION
  Report Type: 
  Country: None (occurrence: None)
  Receive Date: 20100730
  Receipt Date: 20100723
  Transmission Date: 20110219
  Serious: Yes (Hospitalization)
  Sender: FDA-Public Use
  Company Number: B0667659A

PATIENT
  Sex: Female

DRUGS (1)
  1. AUGMENTIN '125' [Suspect]
     Indication: ANTIBIOTIC PROPHYLAXIS
     Dosage: 2UNIT PER DAY
     Route: 048
     Dates: start: 20100708, end: 20100708

REACTIONS (4)
  - ASTHENIA [None]
  - HYPERHIDROSIS [None]
  - HYPOTENSION [None]
  - PRURITUS [None]
